FAERS Safety Report 5235392-7 (Version None)
Quarter: 2007Q1

REPORT INFORMATION
  Report Type: 
  Country: None (occurrence: None)
  Receive Date: 20070208
  Receipt Date: 20070208
  Transmission Date: 20070707
  Serious: Yes (Hospitalization)
  Sender: FDA-Public Use
  Company Number: None

PATIENT
  Age: 66 Year
  Sex: Female
  Weight: 82.5547 kg

DRUGS (1)
  1. FLUDARABINE [Suspect]

REACTIONS (2)
  - HYPOPROTHROMBINAEMIA [None]
  - PNEUMONITIS [None]
